FAERS Safety Report 13027550 (Version 19)
Quarter: 2021Q3

REPORT INFORMATION
  Report Type: Report from Study
  Country: None (occurrence: NL)
  Receive Date: 20161214
  Receipt Date: 20210910
  Transmission Date: 20211014
  Serious: Yes (Hospitalization, Other)
  Sender: FDA-Public Use
  Company Number: NL-ABBVIE-16K-114-1687729-00

PATIENT
  Age: 63 Year
  Sex: Female

DRUGS (12)
  1. DUODOPA [Suspect]
     Active Substance: CARBIDOPA\LEVODOPA
     Indication: PARKINSON^S DISEASE
     Dosage: MD: 4.0ML, CD: 3.7ML/H, ED: 2.5ML; 16 HOUR ADMINISTRATION
     Route: 050
     Dates: start: 20110718
  2. DUODOPA [Suspect]
     Active Substance: CARBIDOPA\LEVODOPA
     Dosage: MD: 7.0 ML, CD: 3.2 ML/H, ED: 3.0 ML
     Route: 050
  3. DUODOPA [Suspect]
     Active Substance: CARBIDOPA\LEVODOPA
     Dosage: MD 4.0 ML; CD 3.3 ML/H; ED 2.5 ML
     Route: 050
  4. MADOPAR DISPERSIBL [Suspect]
     Active Substance: BENSERAZIDE HYDROCHLORIDE\LEVODOPA
     Indication: PRODUCT USED FOR UNKNOWN INDICATION
     Route: 065
  5. DUODOPA [Suspect]
     Active Substance: CARBIDOPA\LEVODOPA
     Dosage: MD: 4.0ML, CD: 3.6ML/H, ED: 2.5ML; 16 HOUR ADMINISTRATION
     Route: 050
     Dates: start: 20200715, end: 202007
  6. DUODOPA [Suspect]
     Active Substance: CARBIDOPA\LEVODOPA
     Dosage: MD: 4.0ML, CD: 3.7ML/H, ED: 2.5ML; 24 HOUR ADMINISTRATION
     Route: 050
     Dates: start: 20200723, end: 2020
  7. DUODOPA [Suspect]
     Active Substance: CARBIDOPA\LEVODOPA
     Dosage: MD 7.0 ML
     Route: 050
  8. NUTRIDRINK [Concomitant]
     Active Substance: CARBOHYDRATES\FATTY ACIDS\MINERALS\PROTEIN\VITAMINS
     Indication: NUTRITIONAL SUPPLEMENTATION
  9. DUODOPA [Suspect]
     Active Substance: CARBIDOPA\LEVODOPA
     Dosage: MD 4.0 ML; CD 3.5 ML/H; ED 2.5 ML
     Route: 050
     Dates: start: 2020
  10. DUODOPA [Suspect]
     Active Substance: CARBIDOPA\LEVODOPA
     Dosage: MD 5.0 ML; CD 3.3 ML/H; ED 3.0 ML
     Route: 050
  11. DUODOPA [Suspect]
     Active Substance: CARBIDOPA\LEVODOPA
     Dosage: MD: 4.0 CD: 3.6 ED: 2.5
     Route: 050
     Dates: start: 2020, end: 2020
  12. MACROGOL [Concomitant]
     Active Substance: POLYETHYLENE GLYCOLS
     Indication: BOWEL MOVEMENT IRREGULARITY
     Dates: start: 2021

REACTIONS (65)
  - Gait disturbance [Not Recovered/Not Resolved]
  - Coronavirus infection [Not Recovered/Not Resolved]
  - Fatigue [Not Recovered/Not Resolved]
  - Stoma site discharge [Recovered/Resolved]
  - Bradykinesia [Not Recovered/Not Resolved]
  - Diarrhoea [Recovered/Resolved]
  - Stoma site erythema [Not Recovered/Not Resolved]
  - Diarrhoea [Not Recovered/Not Resolved]
  - Memory impairment [Unknown]
  - Feeling abnormal [Not Recovered/Not Resolved]
  - Pneumonitis [Recovered/Resolved]
  - Stoma site reaction [Recovered/Resolved]
  - Complication of device insertion [Recovered/Resolved]
  - Head discomfort [Not Recovered/Not Resolved]
  - Drug delivery system issue [Unknown]
  - Skin pressure mark [Not Recovered/Not Resolved]
  - Device occlusion [Unknown]
  - On and off phenomenon [Not Recovered/Not Resolved]
  - Stoma site irritation [Recovered/Resolved]
  - Stoma site infection [Unknown]
  - Stoma site odour [Recovered/Resolved]
  - Therapeutic product effect incomplete [Not Recovered/Not Resolved]
  - Tremor [Not Recovered/Not Resolved]
  - Tremor [Not Recovered/Not Resolved]
  - Incisional hernia [Unknown]
  - Catheter site papule [Unknown]
  - Abnormal faeces [Not Recovered/Not Resolved]
  - Insomnia [Not Recovered/Not Resolved]
  - Musculoskeletal stiffness [Not Recovered/Not Resolved]
  - Incorrect dose administered [Unknown]
  - Cognitive disorder [Recovered/Resolved]
  - Headache [Not Recovered/Not Resolved]
  - Overdose [Not Recovered/Not Resolved]
  - Stoma site inflammation [Recovered/Resolved]
  - Pneumonia [Not Recovered/Not Resolved]
  - Wrong technique in product usage process [Unknown]
  - Weight decreased [Recovered/Resolved]
  - Medical device pain [Recovered/Resolved]
  - Compulsions [Not Recovered/Not Resolved]
  - Pyrexia [Recovered/Resolved]
  - Varicose vein [Unknown]
  - Weight increased [Recovered/Resolved]
  - Diarrhoea [Recovered/Resolved]
  - Lung disorder [Not Recovered/Not Resolved]
  - Incisional hernia [Recovered/Resolved]
  - Mobility decreased [Not Recovered/Not Resolved]
  - Abnormal faeces [Recovered/Resolved]
  - Insomnia [Recovered/Resolved]
  - Sleep disorder [Recovered/Resolved]
  - Dyskinesia [Recovered/Resolved]
  - Muscle spasms [Not Recovered/Not Resolved]
  - Crying [Not Recovered/Not Resolved]
  - Device dislocation [Unknown]
  - Constipation [Recovered/Resolved]
  - Cystitis noninfective [Not Recovered/Not Resolved]
  - Device issue [Not Recovered/Not Resolved]
  - Photopsia [Recovered/Resolved]
  - Catheter site discolouration [Unknown]
  - Product administration error [Unknown]
  - Decreased appetite [Recovered/Resolved]
  - Hyperkinesia [Recovered/Resolved]
  - Freezing phenomenon [Not Recovered/Not Resolved]
  - Stoma site pain [Not Recovered/Not Resolved]
  - Stoma site discharge [Not Recovered/Not Resolved]
  - Fall [Not Recovered/Not Resolved]

NARRATIVE: CASE EVENT DATE: 20160720
